FAERS Safety Report 6589297-X (Version None)
Quarter: 2010Q1

REPORT INFORMATION
  Report Type: 
  Country: None (occurrence: None)
  Receive Date: 20100218
  Receipt Date: 20100204
  Transmission Date: 20100710
  Serious: Yes (Hospitalization, Other)
  Sender: FDA-Public Use
  Company Number: US-CELGENEUS-163-C5013-10020412

PATIENT
  Sex: Male
  Weight: 88.6 kg

DRUGS (1)
  1. CC-5013 [Suspect]
     Route: 065
     Dates: start: 20100201, end: 20100203

REACTIONS (5)
  - BLOOD CREATININE INCREASED [None]
  - CHILLS [None]
  - HYPERBILIRUBINAEMIA [None]
  - PYREXIA [None]
  - TUMOUR FLARE [None]
